FAERS Safety Report 5014835-8 (Version None)
Quarter: 2006Q2

REPORT INFORMATION
  Report Type: 
  Country: None (occurrence: None)
  Receive Date: 20060419
  Receipt Date: 20051019
  Transmission Date: 20061013
  Serious: Yes (Hospitalization)
  Sender: FDA-Public Use
  Company Number: 2005-04003

PATIENT
  Age: 87 Year
  Sex: Female

DRUGS (1)
  1. FERRLECIT [Suspect]
     Indication: IRON DEFICIENCY ANAEMIA
     Dosage: 125 MG/50ML NS OVER 1 HOUR, INTRAVENOUS
     Route: 042
     Dates: start: 20050811, end: 20050811

REACTIONS (3)
  - ANAPHYLACTOID REACTION [None]
  - HYPOTENSION [None]
  - VOMITING [None]
